FAERS Safety Report 6889332-5 (Version None)
Quarter: 2010Q3

REPORT INFORMATION
  Report Type: 
  Country: None (occurrence: None)
  Receive Date: 20100730
  Receipt Date: 20080206
  Transmission Date: 20110219
  Serious: No
  Sender: FDA-Public Use
  Company Number: US-PFIZER INC-2008002035

PATIENT
  Sex: Male
  Weight: 76.2 kg

DRUGS (8)
  1. LIPITOR [Suspect]
  2. PLAVIX [Concomitant]
  3. FISH OIL [Concomitant]
  4. NEXIUM [Concomitant]
     Indication: GASTROOESOPHAGEAL REFLUX DISEASE
  5. ATENOLOL [Concomitant]
  6. ALTACE [Concomitant]
  7. FOLIC ACID [Concomitant]
     Indication: ARTHRITIS
  8. ALEVE (CAPLET) [Concomitant]
     Indication: ARTHRITIS

REACTIONS (1)
  - HIGH DENSITY LIPOPROTEIN DECREASED [None]
